FAERS Safety Report 14241177 (Version 1)
Quarter: 2017Q4

REPORT INFORMATION
  Report Type: Report from Study
  Country: DE (occurrence: DE)
  Receive Date: 20171130
  Receipt Date: 20171130
  Transmission Date: 20180321
  Serious: Yes (Other)
  Sender: FDA-Public Use
  Company Number: DE-GILEAD-2017-0307095

PATIENT
  Age: 65 Year
  Sex: Female

DRUGS (2)
  1. IDELALISIB [Suspect]
     Active Substance: IDELALISIB
     Dosage: 150 MG, BID
     Route: 048
     Dates: start: 20160301, end: 20170201
  2. IDELALISIB [Suspect]
     Active Substance: IDELALISIB
     Indication: CHRONIC LYMPHOCYTIC LEUKAEMIA REFRACTORY
     Dosage: 100 MG, BID
     Route: 048
     Dates: start: 201702

REACTIONS (5)
  - Anaemia [Unknown]
  - Disease progression [Unknown]
  - Lymphadenopathy [Unknown]
  - Ill-defined disorder [Unknown]
  - Thrombocytopenia [Unknown]
